FAERS Safety Report 9777530 (Version 1)
Quarter: 2013Q4

REPORT INFORMATION
  Report Type: Spontaneous
  Country: BR (occurrence: BR)
  Receive Date: 20131222
  Receipt Date: 20131222
  Transmission Date: 20140711
  Serious: Yes (Life-Threatening, Other)
  Sender: FDA-Public Use
  Company Number: PHHY2013BR149711

PATIENT
  Sex: Female

DRUGS (1)
  1. CATAFLAM [Suspect]

REACTIONS (2)
  - Apparent death [Unknown]
  - Drug hypersensitivity [Unknown]
